FAERS Safety Report 6972656-0 (Version None)
Quarter: 2010Q3

REPORT INFORMATION
  Report Type: 
  Country: None (occurrence: None)
  Receive Date: 20100909
  Receipt Date: 20100831
  Transmission Date: 20110219
  Serious: Yes (Disabling, Other)
  Sender: FDA-Public Use
  Company Number: JP-PFIZER INC-2010109687

PATIENT
  Age: 46 Year
  Sex: Male

DRUGS (4)
  1. ZOLOFT [Suspect]
     Indication: DEPRESSION
     Dosage: 25 MG, 1X/DAY
     Route: 048
     Dates: start: 20090213, end: 20090810
  2. ZOLOFT [Suspect]
     Dosage: 50 MG, 2X/DAY
     Route: 048
     Dates: start: 20090811
  3. SILECE [Suspect]
     Dosage: 1 MG/DAY
     Dates: start: 20090213, end: 20100831
  4. DEPAS [Suspect]
     Dosage: 1 MG/DAY
     Dates: start: 20090213, end: 20100831

REACTIONS (2)
  - ALTERED STATE OF CONSCIOUSNESS [None]
  - HEAD INJURY [None]
